FAERS Safety Report 6892668-5 (Version None)
Quarter: 2010Q3

REPORT INFORMATION
  Report Type: 
  Country: None (occurrence: None)
  Receive Date: 20100731
  Receipt Date: 20080806
  Transmission Date: 20110219
  Serious: No
  Sender: FDA-Public Use
  Company Number: US-PFIZER INC-2008066699

PATIENT
  Sex: Female
  Weight: 54.43 kg

DRUGS (5)
  1. NORVASC [Suspect]
     Dosage: 5 MG,DAILY
     Dates: start: 20080722
  2. DILTIA XT [Suspect]
     Indication: BLOOD PRESSURE
     Dosage: 120 MG,DAILY
     Route: 048
     Dates: start: 20080601, end: 20080609
  3. DILTIA XT [Suspect]
     Dosage: 180 MG,DAILY
     Route: 048
     Dates: start: 20080610
  4. CLONIDINE [Suspect]
     Indication: BLOOD PRESSURE
     Dosage: 0.1 MG,DAILY
     Route: 048
     Dates: end: 20080722
  5. HYDROCHLOROTHIAZIDE [Concomitant]
     Dates: start: 20080722

REACTIONS (1)
  - PAIN IN EXTREMITY [None]
